FAERS Safety Report 6646835-6 (Version None)
Quarter: 2010Q1

REPORT INFORMATION
  Report Type: 
  Country: None (occurrence: None)
  Receive Date: 20100323
  Receipt Date: 20100311
  Transmission Date: 20100710
  Serious: Yes (Hospitalization)
  Sender: FDA-Public Use
  Company Number: IT-PFIZER INC-2010016732

PATIENT
  Age: 69 Year
  Sex: Female

DRUGS (2)
  1. ARACYTIN [Suspect]
     Indication: ACUTE MYELOID LEUKAEMIA
     Dosage: 2400 MG TOTAL
     Route: 042
     Dates: start: 20100113, end: 20100120
  2. ZAVEDOS [Suspect]
     Indication: ACUTE MYELOID LEUKAEMIA
     Dosage: 60 MG TOTAL
     Route: 042
     Dates: start: 20100113, end: 20100119

REACTIONS (2)
  - ENTEROCOCCAL INFECTION [None]
  - ENTEROCOCCAL SEPSIS [None]
